FAERS Safety Report 15688793 (Version 5)
Quarter: 2019Q1

REPORT INFORMATION
  Report Type: Report from Study
  Country: IT (occurrence: IT)
  Receive Date: 20181205
  Receipt Date: 20190301
  Transmission Date: 20190417
  Serious: Yes (Hospitalization)
  Sender: FDA-Public Use
  Company Number: IT-ROCHE-2224155

PATIENT
  Age: 47 Year
  Sex: Male
  Weight: 64 kg

DRUGS (7)
  1. CARBOPLATIN. [Suspect]
     Active Substance: CARBOPLATIN
     Indication: NON-SMALL CELL LUNG CANCER STAGE IV
     Dosage: AT AUC 6 MG/ML/MIN?DATE OF MOST RECENT DOSE OF CARBOPLATIN (783 MG) PRIOR TO AE ONSET: 15/FEB/2017
     Route: 042
     Dates: start: 20161213
  2. PACLITAXEL. [Suspect]
     Active Substance: PACLITAXEL
     Indication: NON-SMALL CELL LUNG CANCER STAGE IV
     Dosage: DATE OF MOST RECENT DOSE OF PACLITAXEL (352 MG) PRIOR TO AE ONSET: 15/FEB/2017
     Route: 042
     Dates: start: 20161213
  3. PROPRANOLOL [Concomitant]
     Active Substance: PROPRANOLOL HYDROCHLORIDE
     Indication: ATRIAL FIBRILLATION
     Route: 065
     Dates: start: 20181125
  4. SIMVASTATIN. [Concomitant]
     Active Substance: SIMVASTATIN
     Indication: HYPERCHOLESTEROLAEMIA
     Route: 065
     Dates: start: 20181123
  5. BEVACIZUMAB. [Suspect]
     Active Substance: BEVACIZUMAB
     Indication: NON-SMALL CELL LUNG CANCER STAGE IV
     Dosage: MOST RECENT DOSE OF BEVACIZUMAB ON 02/NOV/2018 960 MG
     Route: 042
     Dates: start: 20161213
  6. ENAPREN [Concomitant]
     Active Substance: ENALAPRIL MALEATE
     Indication: HYPERTENSION
     Route: 065
     Dates: start: 20180228
  7. TAPAZOLE [Concomitant]
     Active Substance: METHIMAZOLE
     Indication: HYPERTHYROIDISM
     Route: 065
     Dates: start: 20181125

REACTIONS (2)
  - Haemoptysis [Recovered/Resolved]
  - Haemorrhagic pneumonia [Recovered/Resolved]

NARRATIVE: CASE EVENT DATE: 20181121
